FAERS Safety Report 7833938-3 (Version None)
Quarter: 2011Q4

REPORT INFORMATION
  Report Type: 
  Country: None (occurrence: None)
  Receive Date: 20111024
  Receipt Date: 20111017
  Transmission Date: 20120403
  Serious: Yes (Hospitalization)
  Sender: FDA-Public Use
  Company Number: FR-UCBSA-043509

PATIENT
  Age: 57 Year
  Sex: Male

DRUGS (4)
  1. PREVISCAN [Suspect]
     Dosage: 20 MG
     Route: 048
     Dates: start: 20081101
  2. ASPIRIN [Suspect]
     Dosage: 160 MG
     Route: 048
     Dates: start: 20070401, end: 20110927
  3. ATORVASTATIN CALCIUM [Suspect]
     Dosage: 80 MG
     Route: 048
     Dates: start: 20070401
  4. KEPPRA [Suspect]
     Dosage: 250 MG
     Route: 048
     Dates: start: 20080601

REACTIONS (4)
  - HAEMOLYTIC ANAEMIA [None]
  - TACHYCARDIA [None]
  - JAUNDICE [None]
  - DYSPNOEA EXERTIONAL [None]
